FAERS Safety Report 4721925-3 (Version None)
Quarter: 2005Q3

REPORT INFORMATION
  Report Type: 
  Country: None (occurrence: None)
  Receive Date: 20050722
  Receipt Date: 20050610
  Transmission Date: 20060218
  Serious: Yes (Hospitalization)
  Sender: FDA-Public Use
  Company Number: PHBS2005DE08802

PATIENT
  Age: 68 Year
  Sex: Male

DRUGS (1)
  1. AREDIA [Suspect]
     Indication: PLASMACYTOMA
     Route: 042

REACTIONS (3)
  - ASEPTIC NECROSIS BONE [None]
  - FISTULA [None]
  - OSTEOMYELITIS [None]
